FAERS Safety Report 9578712 (Version 1)
Quarter: 2013Q4

REPORT INFORMATION
  Report Type: Spontaneous
  Country: US (occurrence: US)
  Receive Date: 20131001
  Receipt Date: 20131001
  Transmission Date: 20140711
  Serious: No
  Sender: FDA-Public Use
  Company Number: US-AMGEN-USASP2013014223

PATIENT
  Sex: Female
  Weight: 129 kg

DRUGS (9)
  1. ENBREL [Suspect]
     Indication: RHEUMATOID ARTHRITIS
     Dosage: 50 MG, QWK
     Route: 058
  2. CARTIA XT [Concomitant]
     Dosage: 120/24HR
  3. METHOTREXATE [Concomitant]
     Dosage: 2.5 MG, UNK
  4. FOLIC ACID [Concomitant]
     Dosage: 20 MG, UNK
  5. MELOXICAM [Concomitant]
     Dosage: 7.5 MG, UNK
  6. PRILOSEC                           /00661201/ [Concomitant]
     Dosage: 10 MG, UNK
  7. LORTAB                             /00607101/ [Concomitant]
     Dosage: 5 TAB
  8. VITAMIN E                          /00110501/ [Concomitant]
     Dosage: 200 UNIT, UNK
  9. SIMVASTATIN [Concomitant]
     Dosage: 10 MG, UNK

REACTIONS (1)
  - Therapeutic response decreased [Unknown]
